FAERS Safety Report 10202200 (Version 1)
Quarter: 2014Q2

REPORT INFORMATION
  Report Type: Spontaneous
  Country: TR (occurrence: TR)
  Receive Date: 20140528
  Receipt Date: 20140528
  Transmission Date: 20141212
  Serious: Yes (Other)
  Sender: FDA-Public Use
  Company Number: TR-ACTAVIS-2014-11266

PATIENT
  Sex: 0

DRUGS (2)
  1. SERTRALINE (UNKNOWN) [Suspect]
     Indication: MAJOR DEPRESSION
     Dosage: 50 MG, DAILY
     Route: 064
  2. MIRTAZAPINE (UNKNOWN) [Suspect]
     Indication: MAJOR DEPRESSION
     Dosage: 15 MG, DAILY
     Route: 064

REACTIONS (3)
  - Foetal growth restriction [Recovered/Resolved]
  - Neonatal tachypnoea [Recovered/Resolved]
  - Foetal exposure during pregnancy [Recovered/Resolved]
